FAERS Safety Report 5417054-6 (Version None)
Quarter: 2007Q3

REPORT INFORMATION
  Report Type: 
  Country: None (occurrence: None)
  Receive Date: 20070816
  Receipt Date: 20070201
  Transmission Date: 20080115
  Serious: No
  Sender: FDA-Public Use
  Company Number: US-BRISTOL-MYERS SQUIBB COMPANY-13534649

PATIENT
  Age: 54 Year
  Sex: Male
  Weight: 82 kg

DRUGS (12)
  1. ZERIT [Suspect]
     Indication: HIV INFECTION
     Dosage: FROM ABOUT ^1999 TO 2000 (IN NOV-2000 HE WAS TAKING 40 MG) FOR ABOUT 6 TO 9 MONTHS^.
     Dates: start: 19990101, end: 20000101
  2. SUSTIVA [Interacting]
     Indication: HIV INFECTION
     Dates: start: 20010101
  3. METHADONE HCL [Interacting]
  4. VIRACEPT [Concomitant]
  5. ZITHROMAX [Concomitant]
  6. VIDEX [Concomitant]
  7. ACYCLOVIR [Concomitant]
  8. HYDROCODONE BITARTRATE [Concomitant]
  9. TRUVADA [Concomitant]
  10. GEMFIBROZIL [Concomitant]
  11. NORTRIPTYLINE HCL [Concomitant]
  12. LIPITOR [Concomitant]

REACTIONS (3)
  - DRUG INTERACTION [None]
  - DRUG SCREEN NEGATIVE [None]
  - NEUROPATHY PERIPHERAL [None]
